FAERS Safety Report 9093623 (Version 4)
Quarter: 2018Q3

REPORT INFORMATION
  Report Type: Report from Study
  Country: NZ (occurrence: NZ)
  Receive Date: 20130201
  Receipt Date: 20180816
  Transmission Date: 20181010
  Serious: Yes (Other)
  Sender: FDA-Public Use
  Company Number: NZ-ROCHE-1182838

PATIENT

DRUGS (3)
  1. SOFOSBUVIR [Suspect]
     Active Substance: SOFOSBUVIR
     Indication: CHRONIC HEPATITIS C
     Dosage: FOR 12 WEEKS
     Route: 048
  2. RIBAVIRIN. [Suspect]
     Active Substance: RIBAVIRIN
     Indication: CHRONIC HEPATITIS C
     Dosage: BASED ON BODY WEIGHT PATIENTS LESS THA 75 KG RECEIVED 1000 MG/D, AND HEAVIER PATIENTS RECEIVED 1200
     Route: 048
  3. PEG?INTERFERON ALFA 2A [Suspect]
     Active Substance: PEGINTERFERON ALFA-2A
     Indication: CHRONIC HEPATITIS C
     Dosage: FOR 4, 8, OR 12 WEEKS
     Route: 058

REACTIONS (7)
  - Neutropenia [Unknown]
  - Leukopenia [Unknown]
  - Anaemia [Unknown]
  - Lymphopenia [Unknown]
  - Insomnia [Unknown]
  - International normalised ratio increased [Unknown]
  - Alanine aminotransferase increased [Unknown]
